FAERS Safety Report 8141781-3 (Version None)
Quarter: 2012Q1

REPORT INFORMATION
  Report Type: 
  Country: None (occurrence: None)
  Receive Date: 20120216
  Receipt Date: 20120215
  Transmission Date: 20120608
  Serious: Yes (Death)
  Sender: FDA-Public Use
  Company Number: US-PFIZER INC-2011027697

PATIENT
  Age: 22 Year
  Sex: Male
  Weight: 81.63 kg

DRUGS (5)
  1. MORPHINE SULFATE [Suspect]
  2. DIPHENHYDRAMINE HCL [Suspect]
  3. COCAINE [Suspect]
  4. CODEINE SULFATE [Suspect]
  5. OXYCODONE HCL [Suspect]

REACTIONS (2)
  - MULTIPLE DRUG OVERDOSE [None]
  - SUBSTANCE ABUSE [None]
